FAERS Safety Report 14929870 (Version 3)
Quarter: 2019Q1

REPORT INFORMATION
  Report Type: Spontaneous
  Country: US (occurrence: US)
  Receive Date: 20180523
  Receipt Date: 20190115
  Transmission Date: 20190417
  Serious: Yes (Other)
  Sender: FDA-Public Use
  Company Number: US-ASTRAZENECA-2018SE62985

PATIENT
  Age: 17696 Day
  Sex: Female
  Weight: 62.6 kg

DRUGS (41)
  1. PREVACID [Suspect]
     Active Substance: LANSOPRAZOLE
     Indication: GASTROOESOPHAGEAL REFLUX DISEASE
     Route: 065
     Dates: start: 2001, end: 2017
  2. SINGULAIR [Concomitant]
     Active Substance: MONTELUKAST SODIUM
     Dosage: 10.0MG UNKNOWN
     Dates: start: 20020501
  3. AMOXICILLIN. [Concomitant]
     Active Substance: AMOXICILLIN
  4. ZEGERID [Suspect]
     Active Substance: OMEPRAZOLE\SODIUM BICARBONATE
     Indication: GASTROOESOPHAGEAL REFLUX DISEASE
     Dosage: GENERIC
     Route: 065
  5. SEREVENT DISKUS [Concomitant]
     Active Substance: SALMETEROL XINAFOATE
     Dosage: 13.0G UNKNOWN
     Dates: start: 19971009
  6. BACTROBAN CR [Concomitant]
     Dosage: 15.0G UNKNOWN
     Dates: start: 19980811
  7. PRENATAL [Concomitant]
     Active Substance: VITAMINS
     Dates: start: 19990529
  8. KETOPROFEN. [Concomitant]
     Active Substance: KETOPROFEN
     Dosage: 50.0MG UNKNOWN
     Dates: start: 20020523
  9. LORATADINE. [Concomitant]
     Active Substance: LORATADINE
  10. WELLBUTRIN [Concomitant]
     Active Substance: BUPROPION HYDROCHLORIDE
     Dosage: 150.0MG UNKNOWN
     Dates: start: 20020429
  11. ACETAMINOPHEN. [Concomitant]
     Active Substance: ACETAMINOPHEN
  12. NEXIUM [Suspect]
     Active Substance: ESOMEPRAZOLE MAGNESIUM
     Indication: GASTROOESOPHAGEAL REFLUX DISEASE
     Dosage: GENERIC UNKNOWN
     Route: 048
  13. NEXIUM [Suspect]
     Active Substance: ESOMEPRAZOLE MAGNESIUM
     Indication: GASTROOESOPHAGEAL REFLUX DISEASE
     Dosage: 40.0MG UNKNOWN
     Route: 048
     Dates: start: 20020429
  14. ZEGERID [Suspect]
     Active Substance: OMEPRAZOLE\SODIUM BICARBONATE
     Indication: GASTROOESOPHAGEAL REFLUX DISEASE
     Route: 065
     Dates: start: 2001, end: 2017
  15. TERAZOL [Concomitant]
     Active Substance: TERCONAZOLE
     Dates: start: 19961126
  16. PAXIL [Concomitant]
     Active Substance: PAROXETINE HYDROCHLORIDE
     Dosage: 20.0MG UNKNOWN
     Dates: start: 19980708
  17. SOLAQUIN FORTE [Concomitant]
     Dosage: 29.37G UNKNOWN
     Dates: start: 19990216
  18. LAC-HYDRIN [Concomitant]
     Active Substance: AMMONIUM LACTATE
     Dosage: 280.0G UNKNOWN
     Dates: start: 19990216
  19. NABUMETONE. [Concomitant]
     Active Substance: NABUMETONE
     Dosage: 500.0MG UNKNOWN
     Dates: start: 20021011
  20. TERCONAZOLE. [Concomitant]
     Active Substance: TERCONAZOLE
  21. PEPCID [Concomitant]
     Active Substance: FAMOTIDINE
     Dates: start: 2015, end: 2017
  22. DESIPRAMINE [Concomitant]
     Active Substance: DESIPRAMINE
     Dosage: 50.0MG UNKNOWN
     Dates: start: 19970917
  23. DEPAKOTE [Concomitant]
     Active Substance: DIVALPROEX SODIUM
     Dosage: 250.0MG UNKNOWN
     Dates: start: 19970917
  24. RISPERDAL [Concomitant]
     Active Substance: RISPERIDONE
     Dosage: 1.0MG UNKNOWN
     Dates: start: 19980708
  25. DIPHENOXYLATE/ATRO [Concomitant]
     Dates: start: 19991222
  26. BIAXIN [Concomitant]
     Active Substance: CLARITHROMYCIN
     Dosage: 500.0MG UNKNOWN
     Dates: start: 20000818
  27. NEXIUM [Suspect]
     Active Substance: ESOMEPRAZOLE MAGNESIUM
     Indication: GASTROOESOPHAGEAL REFLUX DISEASE
     Dosage: 40.0MG UNKNOWN
     Route: 048
     Dates: start: 2001, end: 2017
  28. IBUPROFEN. [Concomitant]
     Active Substance: IBUPROFEN
     Dosage: 800.0MG UNKNOWN
     Dates: start: 19951214
  29. PROVENTIL HFA [Concomitant]
     Active Substance: ALBUTEROL SULFATE
     Dosage: 6.7G UNKNOWN
     Dates: start: 19971009
  30. CELEXA [Concomitant]
     Active Substance: CITALOPRAM HYDROBROMIDE
     Dosage: 20.0MG UNKNOWN
     Dates: start: 20000811
  31. AVAPRO [Concomitant]
     Active Substance: IRBESARTAN
  32. PREDNISONE. [Concomitant]
     Active Substance: PREDNISONE
  33. PREVACID [Suspect]
     Active Substance: LANSOPRAZOLE
     Indication: GASTROOESOPHAGEAL REFLUX DISEASE
     Dosage: GENERIC
     Route: 065
     Dates: start: 2012
  34. RELAFEN [Concomitant]
     Active Substance: NABUMETONE
     Dosage: 500.0MG UNKNOWN
     Dates: start: 20010109
  35. ALBUTEROL. [Concomitant]
     Active Substance: ALBUTEROL
  36. OMEPRAZOLE. [Suspect]
     Active Substance: OMEPRAZOLE
     Indication: GASTROOESOPHAGEAL REFLUX DISEASE
     Route: 065
     Dates: start: 20080213
  37. TUMS [Concomitant]
     Active Substance: CALCIUM CARBONATE
  38. METRONIDAZOLE. [Concomitant]
     Active Substance: METRONIDAZOLE
     Dosage: 500.0MG UNKNOWN
     Dates: start: 19960416
  39. ZYRTEC [Concomitant]
     Active Substance: CETIRIZINE HYDROCHLORIDE
     Dosage: 10.0MG UNKNOWN
     Dates: start: 19970322
  40. KETOCONAZOLE. [Concomitant]
     Active Substance: KETOCONAZOLE
     Dosage: 200.0MG UNKNOWN
     Dates: start: 20020729
  41. ADVAIR HFA [Concomitant]
     Active Substance: FLUTICASONE PROPIONATE\SALMETEROL XINAFOATE

REACTIONS (3)
  - Chronic kidney disease [Unknown]
  - Hypertension [Not Recovered/Not Resolved]
  - Renal failure [Not Recovered/Not Resolved]

NARRATIVE: CASE EVENT DATE: 20130529
